FAERS Safety Report 6100456-2 (Version None)
Quarter: 2009Q1

REPORT INFORMATION
  Report Type: 
  Country: None (occurrence: None)
  Receive Date: 20090226
  Receipt Date: 20090219
  Transmission Date: 20090719
  Serious: Yes (Other)
  Sender: FDA-Public Use
  Company Number: 183005

PATIENT
  Age: 26 Year
  Sex: Male

DRUGS (4)
  1. PROPOFOL [Suspect]
     Indication: GENERAL ANAESTHESIA
  2. ONDANSETRON [Suspect]
     Indication: PROPHYLAXIS OF NAUSEA AND VOMITING
     Dosage: 4 MG, INTRAVENOUS
     Route: 042
  3. (DESFLURANE) [Concomitant]
  4. BUPIVACAINE [Concomitant]

REACTIONS (7)
  - DIAPHRAGMATIC DISORDER [None]
  - DRUG INEFFECTIVE [None]
  - EXTRAPYRAMIDAL DISORDER [None]
  - LARYNGOSPASM [None]
  - OPISTHOTONUS [None]
  - PHARYNGEAL DISORDER [None]
  - SPEECH DISORDER [None]
